FAERS Safety Report 18795179 (Version 2)
Quarter: 2021Q1

REPORT INFORMATION
  Report Type: Report from Study
  Country: JP (occurrence: JP)
  Receive Date: 20210127
  Receipt Date: 20210204
  Transmission Date: 20210419
  Serious: Yes (Hospitalization)
  Sender: FDA-Public Use
  Company Number: JP-ASTRAZENECA-2020SF74827

PATIENT
  Age: 50 Year
  Sex: Female
  Weight: 61.7 kg

DRUGS (15)
  1. LOXOPROFEN SODIUM [Concomitant]
     Active Substance: LOXOPROFEN SODIUM
     Indication: HEADACHE
     Dosage: 60.0MG AS REQUIRED
     Route: 048
     Dates: start: 20200707
  2. OLAPARIB. [Suspect]
     Active Substance: OLAPARIB
     Indication: BREAST NEOPLASM
     Dosage: FLUCTUATED DOSAGE
     Route: 048
     Dates: start: 20200119, end: 20210120
  3. PRIMPERAN [Concomitant]
     Active Substance: METOCLOPRAMIDE HYDROCHLORIDE
     Indication: NAUSEA
     Dosage: 5.0MG AS REQUIRED
     Route: 048
     Dates: start: 20201029
  4. PEMBROLIZUMAB. [Suspect]
     Active Substance: PEMBROLIZUMAB
     Indication: BREAST NEOPLASM
     Route: 042
     Dates: start: 20201029, end: 20201029
  5. METGLUCO [Concomitant]
     Active Substance: METFORMIN HYDROCHLORIDE
     Indication: HYPERGLYCAEMIA
     Dosage: 250 MG
     Route: 048
     Dates: start: 20201110
  6. AZUNOL [Concomitant]
     Indication: PROPHYLAXIS
     Route: 002
     Dates: start: 20200623
  7. PEMBROLIZUMAB. [Suspect]
     Active Substance: PEMBROLIZUMAB
     Indication: BREAST NEOPLASM
     Route: 042
     Dates: start: 20201201, end: 20201201
  8. OLAPARIB. [Suspect]
     Active Substance: OLAPARIB
     Indication: BREAST NEOPLASM
     Dosage: FLUCTUATED DOSAGE
     Route: 048
     Dates: start: 20201029, end: 20201211
  9. OLAPARIB. [Suspect]
     Active Substance: OLAPARIB
     Indication: BREAST NEOPLASM
     Dosage: FLUCTUATED DOSAGE
     Route: 048
     Dates: start: 20201211, end: 20201221
  10. STUDY PROCEDURE [Suspect]
     Active Substance: INVESTIGATIONAL PRODUCT
     Indication: BREAST NEOPLASM
     Route: 065
  11. REBAMIPIDE [Concomitant]
     Active Substance: REBAMIPIDE
     Indication: PROPHYLAXIS
     Route: 048
     Dates: start: 20200702
  12. TRESIBA [Concomitant]
     Active Substance: INSULIN DEGLUDEC
     Indication: HYPERGLYCAEMIA
     Dosage: 6 U, QD
     Route: 058
     Dates: start: 20201126, end: 20201209
  13. HEMOPORISON [Concomitant]
     Indication: HAEMORRHOIDS
     Dosage: 2.0G AS REQUIRED
     Route: 054
     Dates: start: 20200714
  14. TRESIBA [Concomitant]
     Active Substance: INSULIN DEGLUDEC
     Indication: HYPERGLYCAEMIA
     Dosage: 6 U, QD
     Route: 058
     Dates: start: 20201211, end: 20201221
  15. MAGNESIUM OXIDE. [Concomitant]
     Active Substance: MAGNESIUM OXIDE
     Indication: HYPERGLYCAEMIA
     Dosage: 500.0MG AS REQUIRED
     Route: 048
     Dates: start: 20201201

REACTIONS (1)
  - Hepatic function abnormal [Recovering/Resolving]

NARRATIVE: CASE EVENT DATE: 20201222
